FAERS Safety Report 6485289-X (Version None)
Quarter: 2009Q4

REPORT INFORMATION
  Report Type: 
  Country: None (occurrence: None)
  Receive Date: 20091209
  Receipt Date: 20091125
  Transmission Date: 20100525
  Serious: Yes (Death)
  Sender: FDA-Public Use
  Company Number: SI-MERCK-0811HUN00004B1

PATIENT
  Sex: Female

DRUGS (5)
  1. SINGULAIR [Suspect]
     Route: 065
     Dates: end: 20081030
  2. FEXOFENADINE HYDROCHLORIDE [Concomitant]
     Route: 065
  3. FLUTICASONE PROPIONATE [Concomitant]
     Route: 065
  4. DEXAMETHASONE [Concomitant]
     Route: 065
  5. OLOPATADINE HYDROCHLORIDE [Concomitant]
     Route: 065

REACTIONS (3)
  - DRUG EXPOSURE DURING PREGNANCY [None]
  - POLYHYDRAMNIOS [None]
  - PREMATURE BABY [None]
